FAERS Safety Report 6758275-X (Version None)
Quarter: 2010Q2

REPORT INFORMATION
  Report Type: 
  Country: None (occurrence: None)
  Receive Date: 20100607
  Receipt Date: 20100601
  Transmission Date: 20101027
  Serious: Yes (Hospitalization)
  Sender: FDA-Public Use
  Company Number: US-BAYER-201016152BCC

PATIENT
  Age: 79 Year
  Sex: Female
  Weight: 99 kg

DRUGS (8)
  1. ALEVE [Suspect]
     Indication: ARTHRALGIA
     Dosage: UNIT DOSE: 220 MG
     Route: 048
     Dates: start: 20090101
  2. ALEVE [Suspect]
     Dosage: UNIT DOSE: 220 MG
     Route: 048
     Dates: start: 20090101
  3. ALEVE [Suspect]
     Dosage: UNIT DOSE: 220 MG
     Route: 048
     Dates: start: 20090101
  4. METROTOPRIL [Concomitant]
     Route: 065
  5. DIOVAN [Concomitant]
     Route: 065
  6. VERAPAMIL [Concomitant]
     Route: 065
  7. CARTLIVER OIL A + D [Concomitant]
     Route: 065
  8. GLUCOSAMINE [Concomitant]
     Route: 065

REACTIONS (2)
  - DYSPNOEA [None]
  - THROMBOSIS [None]
